FAERS Safety Report 11863058 (Version 1)
Quarter: 2015Q4

REPORT INFORMATION
  Report Type: Spontaneous
  Country: US (occurrence: None)
  Receive Date: 20151222
  Receipt Date: 20151222
  Transmission Date: 20160305
  Serious: Yes (Other)
  Sender: FDA-Public Use
  Company Number: None

PATIENT
  Age: 4 Year
  Sex: Male
  Weight: 22.68 kg

DRUGS (3)
  1. BERRY PROBIOTICS [Concomitant]
  2. TRIAMCINOLONE [Suspect]
     Active Substance: TRIAMCINOLONE
     Indication: ECZEMA
     Dosage: CREAM  AS NEEDED  APPLIED TO A SURFACE, USUALLY THE SKIN
  3. VITAMIN C AS ORGANIC CAMU POWDER [Concomitant]

REACTIONS (10)
  - Burning sensation [None]
  - Fatigue [None]
  - Lymphadenopathy [None]
  - Temperature regulation disorder [None]
  - Erythema [None]
  - Infection [None]
  - Wound secretion [None]
  - Pruritus [None]
  - Urticaria [None]
  - Dependence [None]

NARRATIVE: CASE EVENT DATE: 20130906
